FAERS Safety Report 16909591 (Version 8)
Quarter: 2021Q1

REPORT INFORMATION
  Report Type: Spontaneous
  Country: ES (occurrence: ES)
  Receive Date: 20191011
  Receipt Date: 20210128
  Transmission Date: 20210419
  Serious: Yes (Hospitalization, Other)
  Sender: FDA-Public Use
  Company Number: ES-PFIZER INC-2019436835

PATIENT
  Age: 43 Year
  Sex: Female

DRUGS (3)
  1. CHONDROITIN SULFATE [Concomitant]
     Active Substance: CHONDROITIN SULFATE (BOVINE)
     Indication: MENISCUS INJURY
     Dosage: 400 MG, DAILY
  2. CELECOXIB. [Suspect]
     Active Substance: CELECOXIB
     Indication: MENISCUS INJURY
     Dosage: 200 MG, DAILY
  3. METAMIZOLE [Concomitant]
     Active Substance: METAMIZOLE
     Indication: MENISCUS INJURY
     Dosage: 1725 MG, DAILY

REACTIONS (1)
  - Bipolar disorder [Recovering/Resolving]
